FAERS Safety Report 11941514 (Version 1)
Quarter: 2016Q1

REPORT INFORMATION
  Report Type: Spontaneous
  Country: US (occurrence: US)
  Receive Date: 20160122
  Receipt Date: 20160122
  Transmission Date: 20160526
  Serious: No
  Sender: FDA-Public Use
  Company Number: US-ASTRAZENECA-2016SE03863

PATIENT
  Age: 49 Year
  Sex: Female
  Weight: 61.2 kg

DRUGS (20)
  1. TOPROL XL [Suspect]
     Active Substance: METOPROLOL SUCCINATE
     Indication: PALPITATIONS
     Dosage: MORTIN PHARMACEUTICALS, 50 MG TWICE A DAY
     Route: 065
     Dates: start: 2008, end: 2008
  2. POTASSIUM [Concomitant]
     Active Substance: POTASSIUM
     Indication: SUPPLEMENTATION THERAPY
     Route: 048
     Dates: start: 2008
  3. PRILOSEC [Suspect]
     Active Substance: OMEPRAZOLE MAGNESIUM
     Indication: GASTROOESOPHAGEAL REFLUX DISEASE
     Route: 048
  4. HCTZ [Concomitant]
     Active Substance: HYDROCHLOROTHIAZIDE
     Indication: BLOOD PRESSURE ABNORMAL
     Route: 048
     Dates: start: 2006
  5. TOPROL XL [Suspect]
     Active Substance: METOPROLOL SUCCINATE
     Indication: PALPITATIONS
     Dosage: PAR PHARMACEUTICALS, 50 MG DAILY
     Route: 065
     Dates: start: 2006, end: 2008
  6. TOPROL XL [Suspect]
     Active Substance: METOPROLOL SUCCINATE
     Indication: PALPITATIONS
     Dosage: PAR PHARMACEUTICALS,UNKNOWN
     Route: 065
     Dates: start: 2011, end: 2013
  7. TOPROL XL [Suspect]
     Active Substance: METOPROLOL SUCCINATE
     Indication: BLOOD PRESSURE ABNORMAL
     Dosage: 100 MG IN MORNING AND 50 MG AT NIGHT
     Route: 048
     Dates: start: 201512
  8. TOPROL XL [Suspect]
     Active Substance: METOPROLOL SUCCINATE
     Indication: BLOOD PRESSURE ABNORMAL
     Dosage: PAR PHARMACEUTICALS, UNKNOWN
     Route: 065
     Dates: start: 201512
  9. PRILOSEC [Suspect]
     Active Substance: OMEPRAZOLE MAGNESIUM
     Indication: GASTROOESOPHAGEAL REFLUX DISEASE
     Dosage: UNKNOWN
     Route: 048
  10. TOPROL XL [Suspect]
     Active Substance: METOPROLOL SUCCINATE
     Indication: BLOOD PRESSURE ABNORMAL
     Dosage: PAR PHARMACEUTICALS,UNKNOWN
     Route: 065
     Dates: start: 2011, end: 2013
  11. TOPROL XL [Suspect]
     Active Substance: METOPROLOL SUCCINATE
     Indication: PALPITATIONS
     Dosage: PAR PHARMACEUTICALS, 100MG IN MORNING AND 50 MG AT NIGHT
     Route: 065
     Dates: start: 2013
  12. TOPROL XL [Suspect]
     Active Substance: METOPROLOL SUCCINATE
     Indication: PALPITATIONS
     Dosage: 100 MG IN MORNING AND 50 MG AT NIGHT
     Route: 048
     Dates: start: 201512
  13. TOPROL XL [Suspect]
     Active Substance: METOPROLOL SUCCINATE
     Indication: PALPITATIONS
     Dosage: PAR PHARMACEUTICALS, UNKNOWN
     Route: 065
     Dates: start: 201512
  14. NEXIUM [Suspect]
     Active Substance: ESOMEPRAZOLE MAGNESIUM
     Indication: GASTROOESOPHAGEAL REFLUX DISEASE
     Route: 048
     Dates: start: 2008
  15. LISINOPRIL. [Suspect]
     Active Substance: LISINOPRIL
     Indication: BLOOD PRESSURE ABNORMAL
     Route: 048
     Dates: end: 200611
  16. TOPROL XL [Suspect]
     Active Substance: METOPROLOL SUCCINATE
     Indication: BLOOD PRESSURE ABNORMAL
     Dosage: PAR PHARMACEUTICALS, 50 MG DAILY
     Route: 065
     Dates: start: 2006, end: 2008
  17. TOPROL XL [Suspect]
     Active Substance: METOPROLOL SUCCINATE
     Indication: BLOOD PRESSURE ABNORMAL
     Dosage: MORTIN PHARMACEUTICALS, 50 MG TWICE A DAY
     Route: 065
     Dates: start: 2008, end: 2008
  18. TOPROL XL [Suspect]
     Active Substance: METOPROLOL SUCCINATE
     Indication: BLOOD PRESSURE ABNORMAL
     Dosage: PAR PHARMACEUTICALS, 100MG IN MORNING AND 50 MG AT NIGHT
     Route: 065
     Dates: start: 2013
  19. PRILOSEC [Suspect]
     Active Substance: OMEPRAZOLE MAGNESIUM
     Indication: DYSPEPSIA
     Dosage: UNKNOWN
     Route: 048
  20. PRILOSEC [Suspect]
     Active Substance: OMEPRAZOLE MAGNESIUM
     Indication: DYSPEPSIA
     Route: 048

REACTIONS (10)
  - Gastrooesophageal reflux disease [Unknown]
  - Headache [Unknown]
  - Blood potassium decreased [Unknown]
  - Palpitations [Unknown]
  - Heart rate increased [Unknown]
  - Circumstance or information capable of leading to medication error [Unknown]
  - Blood pressure fluctuation [Unknown]
  - Drug ineffective [Unknown]
  - Chest pain [Unknown]
  - Dyspepsia [Unknown]

NARRATIVE: CASE EVENT DATE: 2011
